FAERS Safety Report 4492724-5 (Version None)
Quarter: 2004Q4

REPORT INFORMATION
  Report Type: 
  Country: None (occurrence: None)
  Receive Date: 20041104
  Receipt Date: 20041012
  Transmission Date: 20050328
  Serious: Yes (Other)
  Sender: FDA-Public Use
  Company Number: 200417885US

PATIENT
  Sex: Male

DRUGS (12)
  1. TRENTAL [Suspect]
     Indication: PROMOTION OF PERIPHERAL CIRCULATION
     Dosage: DOSE: UNK
  2. TEGRETOL [Suspect]
     Route: 048
     Dates: start: 20040925, end: 20040926
  3. METFORMIN [Concomitant]
     Dosage: DOSE: UNK
  4. VASOTEC [Concomitant]
     Dosage: DOSE: UNK
  5. HYTRIN [Concomitant]
     Dosage: DOSE: UNK
  6. LASIX [Concomitant]
     Dosage: DOSE: UNK
  7. INSULIN [Concomitant]
     Dosage: DOSE: UNK
  8. VITAMIN CAP [Concomitant]
     Dosage: DOSE: UNK
  9. VITAMIN C [Concomitant]
     Dosage: DOSE: UNK
  10. VITAMIN E [Concomitant]
     Dosage: DOSE: UNK
  11. OXYCODONE [Concomitant]
     Dosage: DOSE: UNK
  12. AUGMENTIN '125' [Concomitant]
     Dosage: DOSE: UNK
     Route: 042

REACTIONS (8)
  - CONFUSIONAL STATE [None]
  - DYSKINESIA [None]
  - HALLUCINATION [None]
  - HYPERTENSION [None]
  - MEDICATION ERROR [None]
  - MUSCLE SPASMS [None]
  - OVERDOSE [None]
  - URINARY INCONTINENCE [None]
